FAERS Safety Report 24410843 (Version 1)
Quarter: 2024Q4

REPORT INFORMATION
  Report Type: Spontaneous
  Country: BE (occurrence: BE)
  Receive Date: 20241008
  Receipt Date: 20241008
  Transmission Date: 20250114
  Serious: Yes (Other)
  Sender: RELIANCE GENEMEDIX
  Company Number: BE-Reliance-000422

PATIENT
  Age: 71 Year
  Sex: Female

DRUGS (6)
  1. CAPECITABINE [Suspect]
     Active Substance: CAPECITABINE
     Indication: Invasive ductal breast carcinoma
     Dosage: GIVEN FOR 14 DAYS ON A 21-DAY CYCLE FOR 4 CYCLES, RESTARTED AT LOWER DOSE
  2. CAPECITABINE [Suspect]
     Active Substance: CAPECITABINE
     Indication: Metastases to liver
     Dosage: GIVEN FOR 14 DAYS ON A 21-DAY CYCLE FOR 4 CYCLES, RESTARTED AT LOWER DOSE
  3. CAPECITABINE [Suspect]
     Active Substance: CAPECITABINE
     Indication: Malignant neoplasm progression
     Dosage: GIVEN FOR 14 DAYS ON A 21-DAY CYCLE FOR 4 CYCLES, RESTARTED AT LOWER DOSE
  4. CAPECITABINE [Suspect]
     Active Substance: CAPECITABINE
     Indication: Hormone receptor positive breast cancer
     Dosage: GIVEN FOR 14 DAYS ON A 21-DAY CYCLE FOR 4 CYCLES, RESTARTED AT LOWER DOSE
  5. CAPECITABINE [Suspect]
     Active Substance: CAPECITABINE
     Indication: Hormone receptor positive breast cancer
     Dosage: GIVEN FOR 14 DAYS ON A 21-DAY CYCLE FOR 4 CYCLES, RESTARTED AT LOWER DOSE
  6. CAPECITABINE [Suspect]
     Active Substance: CAPECITABINE
     Indication: HER2 negative breast cancer
     Dosage: GIVEN FOR 14 DAYS ON A 21-DAY CYCLE FOR 4 CYCLES, RESTARTED AT LOWER DOSE

REACTIONS (7)
  - Corneal toxicity [Recovering/Resolving]
  - Corneal disorder [Recovering/Resolving]
  - Keratitis [Recovering/Resolving]
  - Fibrosis [Recovering/Resolving]
  - Cataract [Recovering/Resolving]
  - Visual acuity reduced [Recovering/Resolving]
  - Palmar-plantar erythrodysaesthesia syndrome [Recovered/Resolved]
